FAERS Safety Report 15223207 (Version 1)
Quarter: 2018Q3

REPORT INFORMATION
  Report Type: Spontaneous
  Country: US (occurrence: US)
  Receive Date: 20180731
  Receipt Date: 20180731
  Transmission Date: 20181010
  Serious: Yes (Hospitalization, Other)
  Sender: FDA-Public Use
  Company Number: US-SUNOVION-2018SUN002976

PATIENT
  Sex: Male
  Weight: 62.13 kg

DRUGS (2)
  1. BROVANA [Suspect]
     Active Substance: ARFORMOTEROL TARTRATE
     Indication: CHRONIC OBSTRUCTIVE PULMONARY DISEASE
     Dosage: UNK, 15 MCG/ 2 ML
     Route: 055
  2. BUDESONIDE. [Concomitant]
     Active Substance: BUDESONIDE
     Indication: CHRONIC OBSTRUCTIVE PULMONARY DISEASE
     Dosage: UNK

REACTIONS (4)
  - Bronchitis [Not Recovered/Not Resolved]
  - Pneumonia [Recovering/Resolving]
  - Weight increased [Not Recovered/Not Resolved]
  - Kidney infection [Not Recovered/Not Resolved]
